FAERS Safety Report 15275566 (Version 1)
Quarter: 2018Q3

REPORT INFORMATION
  Report Type: Spontaneous
  Country: DE (occurrence: DE)
  Receive Date: 20180814
  Receipt Date: 20180814
  Transmission Date: 20181010
  Serious: Yes (Other)
  Sender: FDA-Public Use
  Company Number: DE-B. BRAUN MEDICAL INC.-2053688

PATIENT
  Age: 23 Year
  Sex: Female
  Weight: 80 kg

DRUGS (1)
  1. HEPARIN SODIUM IN DEXTROSE [Suspect]
     Active Substance: HEPARIN SODIUM
     Indication: PULMONARY EMBOLISM

REACTIONS (2)
  - Pulmonary embolism [None]
  - Heparin-induced thrombocytopenia [Unknown]
